FAERS Safety Report 24373165 (Version 5)
Quarter: 2025Q1

REPORT INFORMATION
  Report Type: Spontaneous
  Country: IE (occurrence: IE)
  Receive Date: 20240927
  Receipt Date: 20250312
  Transmission Date: 20250408
  Serious: Yes (Other)
  Sender: MYLAN
  Company Number: IE-MYLANLABS-2023M1136333

PATIENT
  Age: 53 Year
  Sex: Male

DRUGS (68)
  1. ATORVASTATIN [Suspect]
     Active Substance: ATORVASTATIN
     Indication: Dyslipidaemia
     Dosage: 20 MILLIGRAM, BID
     Route: 065
  2. ATORVASTATIN [Suspect]
     Active Substance: ATORVASTATIN
     Dosage: 20 MILLIGRAM, BID
  3. ATORVASTATIN [Suspect]
     Active Substance: ATORVASTATIN
     Dosage: 20 MILLIGRAM, BID
  4. ATORVASTATIN [Suspect]
     Active Substance: ATORVASTATIN
     Dosage: 20 MILLIGRAM, BID
     Route: 065
  5. ATORVASTATIN [Suspect]
     Active Substance: ATORVASTATIN
     Dosage: 20 MILLIGRAM, BID
     Route: 065
  6. ATORVASTATIN [Suspect]
     Active Substance: ATORVASTATIN
     Dosage: 20 MILLIGRAM, BID
  7. ATORVASTATIN [Suspect]
     Active Substance: ATORVASTATIN
     Dosage: 20 MILLIGRAM, BID
  8. ATORVASTATIN [Suspect]
     Active Substance: ATORVASTATIN
     Dosage: 20 MILLIGRAM, BID
     Route: 065
  9. BISOPROLOL [Suspect]
     Active Substance: BISOPROLOL
     Indication: Heart rate increased
     Dosage: 10 MILLIGRAM, QD
  10. BISOPROLOL [Suspect]
     Active Substance: BISOPROLOL
     Dosage: 10 MILLIGRAM, QD
     Route: 048
  11. BISOPROLOL [Suspect]
     Active Substance: BISOPROLOL
     Dosage: 10 MILLIGRAM, QD
     Route: 048
  12. BISOPROLOL [Suspect]
     Active Substance: BISOPROLOL
     Dosage: 10 MILLIGRAM, QD
  13. NITROFURANTOIN [Suspect]
     Active Substance: NITROFURANTOIN
     Indication: Product used for unknown indication
  14. NITROFURANTOIN [Suspect]
     Active Substance: NITROFURANTOIN
     Route: 065
  15. NITROFURANTOIN [Suspect]
     Active Substance: NITROFURANTOIN
     Route: 065
  16. NITROFURANTOIN [Suspect]
     Active Substance: NITROFURANTOIN
  17. ASCORBIC ACID\ASPIRIN [Suspect]
     Active Substance: ASCORBIC ACID\ASPIRIN
     Indication: Arrhythmia supraventricular
     Dosage: 75 MILLIGRAM, QD
  18. ASCORBIC ACID\ASPIRIN [Suspect]
     Active Substance: ASCORBIC ACID\ASPIRIN
     Dosage: 75 MILLIGRAM, QD
     Route: 048
  19. ASCORBIC ACID\ASPIRIN [Suspect]
     Active Substance: ASCORBIC ACID\ASPIRIN
     Dosage: 75 MILLIGRAM, QD
     Route: 048
  20. ASCORBIC ACID\ASPIRIN [Suspect]
     Active Substance: ASCORBIC ACID\ASPIRIN
     Dosage: 75 MILLIGRAM, QD
  21. DUTASTERIDE [Suspect]
     Active Substance: DUTASTERIDE
     Indication: Prostatism
     Dosage: 0.5 MILLIGRAM, QD (DAILY)
  22. DUTASTERIDE [Suspect]
     Active Substance: DUTASTERIDE
     Dosage: 0.5 MILLIGRAM, QD (DAILY)
     Route: 048
  23. DUTASTERIDE [Suspect]
     Active Substance: DUTASTERIDE
     Dosage: 0.5 MILLIGRAM, QD (DAILY)
     Route: 048
  24. DUTASTERIDE [Suspect]
     Active Substance: DUTASTERIDE
     Dosage: 0.5 MILLIGRAM, QD (DAILY)
  25. CLOZARIL [Suspect]
     Active Substance: CLOZAPINE
     Indication: Schizophrenia
     Dosage: 100 MILLIGRAM, MANE (MORNING)
     Dates: start: 20220427
  26. CLOZARIL [Suspect]
     Active Substance: CLOZAPINE
     Dosage: 100 MILLIGRAM, MANE (MORNING)
     Dates: start: 20220427
  27. CLOZARIL [Suspect]
     Active Substance: CLOZAPINE
     Dosage: 100 MILLIGRAM, MANE (MORNING)
     Route: 048
     Dates: start: 20220427
  28. CLOZARIL [Suspect]
     Active Substance: CLOZAPINE
     Dosage: 100 MILLIGRAM, MANE (MORNING)
     Route: 048
     Dates: start: 20220427
  29. CLOZARIL [Suspect]
     Active Substance: CLOZAPINE
  30. CLOZARIL [Suspect]
     Active Substance: CLOZAPINE
  31. CLOZARIL [Suspect]
     Active Substance: CLOZAPINE
     Route: 048
  32. CLOZARIL [Suspect]
     Active Substance: CLOZAPINE
     Route: 048
  33. CLOZARIL [Suspect]
     Active Substance: CLOZAPINE
  34. CLOZARIL [Suspect]
     Active Substance: CLOZAPINE
     Route: 065
  35. CLOZARIL [Suspect]
     Active Substance: CLOZAPINE
  36. CLOZARIL [Suspect]
     Active Substance: CLOZAPINE
     Route: 065
  37. MOVICOL [Suspect]
     Active Substance: POLYETHYLENE GLYCOL 3350\POTASSIUM CHLORIDE\SODIUM BICARBONATE\SODIUM CHLORIDE
     Indication: Constipation
     Dosage: 1 DOSAGE FORM, QD (ONE DAILY)
  38. MOVICOL [Suspect]
     Active Substance: POLYETHYLENE GLYCOL 3350\POTASSIUM CHLORIDE\SODIUM BICARBONATE\SODIUM CHLORIDE
     Dosage: 1 DOSAGE FORM, QD (ONE DAILY)
     Route: 048
  39. MOVICOL [Suspect]
     Active Substance: POLYETHYLENE GLYCOL 3350\POTASSIUM CHLORIDE\SODIUM BICARBONATE\SODIUM CHLORIDE
     Dosage: 1 DOSAGE FORM, QD (ONE DAILY)
     Route: 048
  40. MOVICOL [Suspect]
     Active Substance: POLYETHYLENE GLYCOL 3350\POTASSIUM CHLORIDE\SODIUM BICARBONATE\SODIUM CHLORIDE
     Dosage: 1 DOSAGE FORM, QD (ONE DAILY)
  41. VITAMIN D [Suspect]
     Active Substance: VITAMIN D NOS
     Indication: Vitamin supplementation
     Dosage: 800 INTERNATIONAL UNIT, QD (DAILY)
  42. VITAMIN D [Suspect]
     Active Substance: VITAMIN D NOS
     Dosage: 800 INTERNATIONAL UNIT, QD (DAILY)
     Route: 048
  43. VITAMIN D [Suspect]
     Active Substance: VITAMIN D NOS
     Dosage: 800 INTERNATIONAL UNIT, QD (DAILY)
     Route: 048
  44. VITAMIN D [Suspect]
     Active Substance: VITAMIN D NOS
     Dosage: 800 INTERNATIONAL UNIT, QD (DAILY)
  45. LANSOPRAZOLE [Suspect]
     Active Substance: LANSOPRAZOLE
     Indication: Dyspepsia
     Dosage: 30 MILLIGRAM, QD
  46. LANSOPRAZOLE [Suspect]
     Active Substance: LANSOPRAZOLE
     Dosage: 30 MILLIGRAM, QD
     Route: 048
  47. LANSOPRAZOLE [Suspect]
     Active Substance: LANSOPRAZOLE
     Dosage: 30 MILLIGRAM, QD
     Route: 048
  48. LANSOPRAZOLE [Suspect]
     Active Substance: LANSOPRAZOLE
     Dosage: 30 MILLIGRAM, QD
  49. AMISULPRIDE [Suspect]
     Active Substance: AMISULPRIDE
     Indication: Product used for unknown indication
     Dosage: 50 MILLIGRAM, BID
  50. AMISULPRIDE [Suspect]
     Active Substance: AMISULPRIDE
     Dosage: 50 MILLIGRAM, BID
     Route: 048
  51. AMISULPRIDE [Suspect]
     Active Substance: AMISULPRIDE
     Dosage: 50 MILLIGRAM, BID
     Route: 048
  52. AMISULPRIDE [Suspect]
     Active Substance: AMISULPRIDE
     Dosage: 50 MILLIGRAM, BID
  53. LACTULOSE [Suspect]
     Active Substance: LACTULOSE
     Indication: Constipation
     Dosage: 10 MILLILITER, BID
  54. LACTULOSE [Suspect]
     Active Substance: LACTULOSE
     Dosage: 10 MILLILITER, BID
     Route: 048
  55. LACTULOSE [Suspect]
     Active Substance: LACTULOSE
     Dosage: 10 MILLILITER, BID
     Route: 048
  56. LACTULOSE [Suspect]
     Active Substance: LACTULOSE
     Dosage: 10 MILLILITER, BID
  57. VALPROATE SODIUM [Suspect]
     Active Substance: VALPROATE SODIUM
     Indication: Catatonia
  58. VALPROATE SODIUM [Suspect]
     Active Substance: VALPROATE SODIUM
     Indication: Seizure prophylaxis
     Route: 048
  59. VALPROATE SODIUM [Suspect]
     Active Substance: VALPROATE SODIUM
     Route: 048
  60. VALPROATE SODIUM [Suspect]
     Active Substance: VALPROATE SODIUM
  61. ATROPINE [Concomitant]
     Active Substance: ATROPINE
     Indication: Salivary hypersecretion
     Dosage: 2 DOSAGE FORM, AM (2 DROPS, MANE)
     Route: 060
  62. ATROPINE [Concomitant]
     Active Substance: ATROPINE
     Dosage: 2 DOSAGE FORM, AM (2 DROPS, MANE)
  63. ATROPINE [Concomitant]
     Active Substance: ATROPINE
     Dosage: 2 DOSAGE FORM, AM (2 DROPS, MANE)
  64. ATROPINE [Concomitant]
     Active Substance: ATROPINE
     Dosage: 2 DOSAGE FORM, AM (2 DROPS, MANE)
     Route: 060
  65. ATROPINE [Concomitant]
     Active Substance: ATROPINE
     Dosage: 2 DOSAGE FORM, AM (2 DROPS, MANE)
     Route: 060
  66. ATROPINE [Concomitant]
     Active Substance: ATROPINE
     Dosage: 2 DOSAGE FORM, AM (2 DROPS, MANE)
  67. ATROPINE [Concomitant]
     Active Substance: ATROPINE
     Dosage: 2 DOSAGE FORM, AM (2 DROPS, MANE)
  68. ATROPINE [Concomitant]
     Active Substance: ATROPINE
     Dosage: 2 DOSAGE FORM, AM (2 DROPS, MANE)
     Route: 060

REACTIONS (2)
  - Thrombocytopenia [Unknown]
  - Eosinophilia [Unknown]

NARRATIVE: CASE EVENT DATE: 20231106
